FAERS Safety Report 5736945-X (Version None)
Quarter: 2008Q2

REPORT INFORMATION
  Report Type: 
  Country: None (occurrence: None)
  Receive Date: 20080509
  Receipt Date: 20080423
  Transmission Date: 20081010
  Serious: Yes (Death, Life-Threatening)
  Sender: FDA-Public Use
  Company Number: 2008US001120

PATIENT
  Age: 53 Year
  Sex: Female
  Weight: 55 kg

DRUGS (28)
  1. AMBISOME [Suspect]
     Indication: ANTIFUNGAL PROPHYLAXIS
     Dosage: 3 MG/KG, 3XWEEKLY, IV NOS; 7MG/KG, WEEKLY, IV NOS
     Route: 042
     Dates: start: 20080220, end: 20080313
  2. AMBISOME [Suspect]
     Indication: ANTIFUNGAL PROPHYLAXIS
     Dosage: 3 MG/KG, 3XWEEKLY, IV NOS; 7MG/KG, WEEKLY, IV NOS
     Route: 042
     Dates: start: 20080319, end: 20080409
  3. FOSCAVIR [Concomitant]
  4. DIFLUCAN [Concomitant]
  5. CIPROFLOXACIN [Concomitant]
  6. MYCOSTATIN [Concomitant]
  7. RESTORIL [Concomitant]
  8. ZOFRAN [Concomitant]
  9. SOLU-MEDROL [Concomitant]
  10. ZANTAC [Concomitant]
  11. CERNEVIT-12 [Concomitant]
  12. ALLOPURINOL [Concomitant]
  13. CALCIUM GLUCONATE [Concomitant]
  14. POTASSIUM CHLORIDE [Concomitant]
  15. MESNA [Concomitant]
  16. LIMICAN (ALIZAPRIDE HYDROCHLORIDE) [Concomitant]
  17. BICARBONAT (SODIUM BICARBONATE) [Concomitant]
  18. INSULIN (INSULIN) [Concomitant]
  19. MAGNESIUM (MAGNESIUM) [Concomitant]
  20. LASIX [Concomitant]
  21. LOPEMID (LOPERAMIDE HYDROCHLORIDE) [Concomitant]
  22. LEDERFOLIN (CALCIUM FOLINATE) [Concomitant]
  23. DURAGESIC [Concomitant]
  24. ATG (ANTITHYMOCYTE IMMUNOGLOBULIN) [Concomitant]
  25. LOPERID [Concomitant]
  26. RITUXAN [Concomitant]
  27. SODIUM CHLORIDE 0.9% [Concomitant]
  28. ZESTRIL [Concomitant]

REACTIONS (2)
  - COMA [None]
  - EPSTEIN-BARR VIRUS INFECTION [None]
